FAERS Safety Report 8835274 (Version 2)
Quarter: 2012Q4

REPORT INFORMATION
  Report Type: 
  Country: JP (occurrence: JP)
  Receive Date: 20121011
  Receipt Date: 20121011
  Transmission Date: 20130627
  Serious: Yes (Other)
  Sender: FDA-Public Use
  Company Number: JP-ROCHE-1143294

PATIENT
  Age: 63 Year
  Sex: Male

DRUGS (6)
  1. AVASTIN [Suspect]
     Indication: COLON CANCER
     Dosage: Dosage is uncertain.
     Route: 041
     Dates: start: 201002, end: 2010
  2. AVASTIN [Suspect]
     Indication: COLON CANCER
     Dosage: Dosage is uncertain.
     Route: 041
     Dates: start: 201008, end: 201112
  3. XELODA [Suspect]
     Indication: COLON CANCER
     Dosage: Dosage is uncertain.
     Route: 048
     Dates: start: 201002, end: 2010
  4. XELODA [Suspect]
     Indication: COLON CANCER
     Dosage: Dosage is uncertain.
     Route: 048
     Dates: start: 201008
  5. ELPLAT [Concomitant]
     Indication: COLON CANCER
     Dosage: Dosage is uncertain.
     Route: 041
     Dates: start: 201002, end: 2010
  6. LEUCOVORIN [Concomitant]
     Indication: COLON CANCER
     Dosage: Dosage is uncertain.
     Route: 065
     Dates: start: 201008

REACTIONS (2)
  - Metastases to adrenals [Unknown]
  - Nephrotic syndrome [Recovering/Resolving]
